FAERS Safety Report 5073649-3 (Version None)
Quarter: 2006Q3

REPORT INFORMATION
  Report Type: 
  Country: None (occurrence: None)
  Receive Date: 20060808
  Receipt Date: 20050315
  Transmission Date: 20061208
  Serious: No
  Sender: FDA-Public Use
  Company Number: US-AMGEN-KDL122290

PATIENT
  Age: 66 Year
  Sex: Female
  Weight: 90.8 kg

DRUGS (1)
  1. PROCRIT [Suspect]
     Indication: MYELODYSPLASTIC SYNDROME
     Dates: start: 20050101

REACTIONS (1)
  - RECTAL HAEMORRHAGE [None]
